FAERS Safety Report 5409953-6 (Version None)
Quarter: 2007Q3

REPORT INFORMATION
  Report Type: 
  Country: None (occurrence: None)
  Receive Date: 20070809
  Receipt Date: 20070730
  Transmission Date: 20080115
  Serious: Yes (Hospitalization)
  Sender: FDA-Public Use
  Company Number: DE-PFIZER INC-2007060244

PATIENT
  Age: 58 Year
  Sex: Female

DRUGS (8)
  1. CHAMPIX [Suspect]
     Indication: TOBACCO ABUSE
  2. ISOPTIN [Concomitant]
     Route: 048
  3. FOSAMAX [Concomitant]
     Route: 048
  4. KATADOLON [Concomitant]
     Route: 048
  5. SPIRIVA [Concomitant]
     Route: 048
  6. ALL OTHER THERAPEUTIC PRODUCTS [Concomitant]
  7. KARVEZIDE [Concomitant]
  8. BEROTEC [Concomitant]

REACTIONS (1)
  - HYPERCALCAEMIA [None]
